FAERS Safety Report 8580675-6 (Version None)
Quarter: 2012Q3

REPORT INFORMATION
  Report Type: 
  Country: None (occurrence: None)
  Receive Date: 20120809
  Receipt Date: 20120731
  Transmission Date: 20120928
  Serious: No
  Sender: FDA-Public Use
  Company Number: US-BIOGENIDEC-2011BI043608

PATIENT
  Sex: Female

DRUGS (3)
  1. AVONEX [Concomitant]
     Indication: MULTIPLE SCLEROSIS
     Route: 030
     Dates: start: 20011005
  2. VESICARE [Concomitant]
     Indication: URINARY INCONTINENCE
  3. TYSABRI [Suspect]
     Indication: MULTIPLE SCLEROSIS
     Route: 042
     Dates: start: 20110926, end: 20111024

REACTIONS (9)
  - CHEST DISCOMFORT [None]
  - VERTIGO [None]
  - DRUG SPECIFIC ANTIBODY PRESENT [None]
  - ASTHENIA [None]
  - HYPERSENSITIVITY [None]
  - SOMNOLENCE [None]
  - FATIGUE [None]
  - MUSCULAR WEAKNESS [None]
  - INFUSION RELATED REACTION [None]
